FAERS Safety Report 10200396 (Version 1)
Quarter: 2014Q2

REPORT INFORMATION
  Report Type: Spontaneous
  Country: FR (occurrence: FR)
  Receive Date: 20140528
  Receipt Date: 20140528
  Transmission Date: 20141212
  Serious: Yes (Hospitalization)
  Sender: FDA-Public Use
  Company Number: FR-ROCHE-1408649

PATIENT
  Age: 51 Year
  Sex: Female

DRUGS (5)
  1. XOLAIR [Suspect]
     Indication: PRODUCT USED FOR UNKNOWN INDICATION
     Route: 058
  2. XOLAIR [Suspect]
     Route: 058
     Dates: start: 20140425, end: 20140425
  3. XOLAIR [Suspect]
     Dosage: DOSE INCREASED
     Route: 058
  4. LOSARTAN [Concomitant]
  5. NOVOPULMON [Concomitant]

REACTIONS (1)
  - Acute coronary syndrome [Recovered/Resolved with Sequelae]
